FAERS Safety Report 18171035 (Version 2)
Quarter: 2020Q3

REPORT INFORMATION
  Report Type: Spontaneous
  Country: US (occurrence: US)
  Receive Date: 20200819
  Receipt Date: 20200924
  Transmission Date: 20201103
  Serious: Yes (Other)
  Sender: FDA-Public Use
  Company Number: US-ASTRAZENECA-2020SF02908

PATIENT
  Age: 69 Year

DRUGS (2)
  1. PROAIR HFA [Concomitant]
     Active Substance: ALBUTEROL SULFATE
     Indication: CHRONIC OBSTRUCTIVE PULMONARY DISEASE
  2. SYMBICORT [Suspect]
     Active Substance: BUDESONIDE\FORMOTEROL FUMARATE DIHYDRATE
     Indication: CHRONIC OBSTRUCTIVE PULMONARY DISEASE
     Dosage: 160/4.5MCG, TWO TIMES A DAY
     Route: 055
     Dates: start: 20200726

REACTIONS (5)
  - Device malfunction [Unknown]
  - Pneumonitis [Unknown]
  - Prostate cancer [Unknown]
  - Cough [Unknown]
  - Haemoptysis [Unknown]

NARRATIVE: CASE EVENT DATE: 201604
